FAERS Safety Report 10231864 (Version 1)
Quarter: 2014Q2

REPORT INFORMATION
  Report Type: Spontaneous
  Country: US (occurrence: US)
  Receive Date: 20140612
  Receipt Date: 20140612
  Transmission Date: 20141212
  Serious: No
  Sender: FDA-Public Use
  Company Number: US-ASTRAZENECA-2014SE38304

PATIENT
  Age: 56 Year
  Sex: Female
  Weight: 74.8 kg

DRUGS (1)
  1. RHINOCORT AQUA [Suspect]
     Indication: MULTIPLE ALLERGIES
     Dosage: 2 SPRAYS A NOSTRIL DAILY
     Route: 045

REACTIONS (1)
  - Injury associated with device [Unknown]
